FAERS Safety Report 14190768 (Version 5)
Quarter: 2017Q4

REPORT INFORMATION
  Report Type: Spontaneous
  Country: US (occurrence: US)
  Receive Date: 20171115
  Receipt Date: 20171226
  Transmission Date: 20180321
  Serious: Yes (Hospitalization, Other)
  Sender: FDA-Public Use
  Company Number: US-AMGEN-USASP2017170552

PATIENT
  Age: 60 Year
  Sex: Male

DRUGS (4)
  1. PROCRIT [Suspect]
     Active Substance: ERYTHROPOIETIN
     Indication: ERYTHROID MATURATION ARREST
  2. ENBREL [Suspect]
     Active Substance: ETANERCEPT
     Indication: RHEUMATOID ARTHRITIS
     Dosage: UNK
     Route: 065
  3. PROCRIT [Suspect]
     Active Substance: ERYTHROPOIETIN
     Indication: HAEMOLYSIS
     Dosage: UNK
     Route: 065
  4. NEUPOGEN [Suspect]
     Active Substance: FILGRASTIM
     Indication: WHITE BLOOD CELL COUNT DECREASED
     Dosage: UNK
     Route: 065

REACTIONS (13)
  - Pneumonia [Not Recovered/Not Resolved]
  - Drug effect delayed [Unknown]
  - Dyspnoea [Recovering/Resolving]
  - Swelling [Not Recovered/Not Resolved]
  - Erythroid maturation arrest [Unknown]
  - White blood cell count decreased [Unknown]
  - Gait inability [Not Recovered/Not Resolved]
  - Injection site pain [Unknown]
  - Pain [Unknown]
  - Liver disorder [Unknown]
  - Renal disorder [Unknown]
  - Cough [Unknown]
  - Haemolysis [Unknown]

NARRATIVE: CASE EVENT DATE: 201712
